FAERS Safety Report 9583747 (Version 1)
Quarter: 2013Q4

REPORT INFORMATION
  Report Type: Spontaneous
  Country: US (occurrence: US)
  Receive Date: 20131002
  Receipt Date: 20131002
  Transmission Date: 20140711
  Serious: No
  Sender: FDA-Public Use
  Company Number: US-AMGEN-USASP2013050099

PATIENT
  Age: 46 Year
  Sex: Male
  Weight: 86.17 kg

DRUGS (7)
  1. ENBREL [Suspect]
     Indication: PRODUCT USED FOR UNKNOWN INDICATION
     Dosage: 50 MG, QWK
     Route: 065
  2. KLONOPIN [Concomitant]
     Dosage: 1 MG, UNK
  3. CYMBALTA [Concomitant]
     Dosage: 20 MG, UNK
  4. LAMICTAL [Concomitant]
     Dosage: 25 MG, UNK
  5. SIMVASTATIN [Concomitant]
     Dosage: 10 MG, UNK
  6. TANSULOSINA [Concomitant]
     Dosage: 0.4 MG, UNK
  7. EYEVITE [Concomitant]
     Dosage: UNK

REACTIONS (1)
  - Therapeutic response decreased [Unknown]
